FAERS Safety Report 7767713-5 (Version None)
Quarter: 2011Q3

REPORT INFORMATION
  Report Type: 
  Country: None (occurrence: None)
  Receive Date: 20110922
  Receipt Date: 20110919
  Transmission Date: 20111222
  Serious: Yes (Other)
  Sender: FDA-Public Use
  Company Number: US-PFIZER INC-2011223163

PATIENT
  Sex: Female

DRUGS (2)
  1. DYAZIDE [Suspect]
     Indication: HYPERTENSION
  2. PROCARDIA XL [Suspect]
     Indication: HYPERTENSION

REACTIONS (1)
  - ANAPHYLACTIC REACTION [None]
